APPROVED DRUG PRODUCT: ESTRADIOL VALERATE
Active Ingredient: ESTRADIOL VALERATE
Strength: 20MG/ML
Dosage Form/Route: INJECTABLE;INJECTION
Application: A040628 | Product #002
Applicant: FOSUN PHARMA USA INC
Approved: Oct 4, 2007 | RLD: No | RS: No | Type: DISCN